FAERS Safety Report 8772292 (Version 1)
Quarter: 2012Q4

REPORT INFORMATION
  Report Type: 
  Country: US (occurrence: US)
  Receive Date: 20120906
  Receipt Date: 20120906
  Transmission Date: 20130627
  Serious: No
  Sender: FDA-Public Use
  Company Number: US-BIOGENIDEC-2012BI035553

PATIENT
  Age: 56 Year
  Sex: Female

DRUGS (2)
  1. TYSABRI [Suspect]
     Indication: MULTIPLE SCLEROSIS
     Route: 042
     Dates: start: 20111024
  2. PROVIGIL [Concomitant]

REACTIONS (5)
  - Influenza [Not Recovered/Not Resolved]
  - Multiple sclerosis [Not Recovered/Not Resolved]
  - Fatigue [Not Recovered/Not Resolved]
  - Hypertension [Not Recovered/Not Resolved]
  - Asthenia [Not Recovered/Not Resolved]
